FAERS Safety Report 10167660 (Version 1)
Quarter: 2014Q2

REPORT INFORMATION
  Report Type: Spontaneous
  Country: JP (occurrence: JP)
  Receive Date: 20140512
  Receipt Date: 20140512
  Transmission Date: 20141212
  Serious: Yes (Death)
  Sender: FDA-Public Use
  Company Number: JP-MALLINCKRODT-T201402130

PATIENT
  Age: 56 Year
  Sex: Male

DRUGS (17)
  1. METHADONE [Suspect]
     Indication: CANCER PAIN
     Dosage: 5 MG, (15 MG DAILY DOSE)
     Route: 048
     Dates: start: 20140403, end: 20140410
  2. OPSO [Concomitant]
     Dosage: 10 MG, PRN
     Dates: start: 20140402, end: 20140409
  3. E KEPPRA [Concomitant]
     Dosage: 1000 MG, UNK
     Route: 048
     Dates: end: 20140410
  4. LANSOPRAZOLE [Concomitant]
     Dosage: 15 MG, UNK
     Route: 048
     Dates: end: 20140409
  5. TEGRETOL [Concomitant]
     Dosage: 100 MG, UNK
     Route: 048
     Dates: end: 20140409
  6. RISPERDAL [Concomitant]
     Dosage: 0.5 MG, UNK
     Route: 048
     Dates: end: 20140409
  7. BROTIZOLAM [Concomitant]
     Dosage: 0.25 MG, UNK
     Route: 048
     Dates: end: 20140409
  8. LOXOPROFEN [Concomitant]
     Dosage: 180 MG, UNK
     Route: 048
     Dates: end: 20140409
  9. VOLTAREN [Concomitant]
     Dosage: 50 MG, UNK
     Route: 054
     Dates: end: 20140410
  10. ACETATE RINGERS [Concomitant]
     Dosage: 500 ML, UNK
     Route: 051
     Dates: end: 20140408
  11. VITAMEDIN INTRAVENOUS [Concomitant]
     Dosage: 1 DF, UNK
     Route: 051
     Dates: end: 20140408
  12. VITAMIN C [Concomitant]
     Dosage: 500 MG, UNK
     Route: 051
     Dates: end: 20140408
  13. KAYTWO N [Concomitant]
     Dosage: 10 MG, UNK
     Route: 051
     Dates: end: 20140408
  14. RINDERON [Concomitant]
     Dosage: 4 MG, UNK
     Route: 051
     Dates: end: 20140410
  15. OMEPRAZOLE [Concomitant]
     Dosage: 20 MG, UNK
     Route: 051
     Dates: end: 20140410
  16. SULTAMUGIN [Concomitant]
     Dosage: 2 G, UNK
     Route: 051
     Dates: end: 20140408
  17. ZOSYN [Concomitant]
     Dosage: 9 G, UNK
     Route: 051
     Dates: start: 20140408, end: 20140410

REACTIONS (1)
  - Oesophageal carcinoma [Fatal]
